FAERS Safety Report 9395060 (Version 2)
Quarter: 2013Q3

REPORT INFORMATION
  Report Type: Spontaneous
  Country: NO (occurrence: NO)
  Receive Date: 20130711
  Receipt Date: 20130926
  Transmission Date: 20140515
  Serious: Yes (Death, Life-Threatening, Hospitalization)
  Sender: FDA-Public Use
  Company Number: NO-CELGENEUS-122-POMAL-13070681

PATIENT
  Age: 55 Year
  Sex: Female
  Weight: 103 kg

DRUGS (5)
  1. POMALYST [Suspect]
     Indication: PLASMA CELL MYELOMA
     Dosage: 4 MILLIGRAM
     Route: 048
     Dates: start: 20130419, end: 20130507
  2. DEXAMETHASONE [Concomitant]
     Indication: PLASMA CELL MYELOMA
     Route: 065
  3. DEXAMETHASONE [Concomitant]
     Route: 065
     Dates: start: 2005, end: 2005
  4. DEXAMETHASONE [Concomitant]
     Route: 065
     Dates: start: 20121126
  5. FRAGMIN [Concomitant]
     Indication: THROMBOSIS PROPHYLAXIS
     Route: 065

REACTIONS (3)
  - Plasma cell myeloma [Fatal]
  - Plasmacytoma [Fatal]
  - Neutropenic sepsis [Fatal]
